FAERS Safety Report 5587054-4 (Version None)
Quarter: 2008Q1

REPORT INFORMATION
  Report Type: 
  Country: None (occurrence: None)
  Receive Date: 20080110
  Receipt Date: 20080103
  Transmission Date: 20080703
  Serious: Yes (Other)
  Sender: FDA-Public Use
  Company Number: B0361149A

PATIENT
  Age: 29 Year
  Sex: Female

DRUGS (1)
  1. PAROXETINE HYDROCHLORIDE [Suspect]
     Route: 065
     Dates: start: 20021028

REACTIONS (35)
  - AFFECT LABILITY [None]
  - AGITATION [None]
  - ANGER [None]
  - ANXIETY [None]
  - BALANCE DISORDER [None]
  - CRYING [None]
  - DECREASED APPETITE [None]
  - DEPRESSED MOOD [None]
  - DEPRESSION [None]
  - DISORIENTATION [None]
  - DISSOCIATION [None]
  - DISTURBANCE IN ATTENTION [None]
  - DIZZINESS [None]
  - DRUG WITHDRAWAL SYNDROME [None]
  - ELECTRIC SHOCK [None]
  - FATIGUE [None]
  - FEAR [None]
  - FEELING ABNORMAL [None]
  - HEADACHE [None]
  - HYPERHIDROSIS [None]
  - IMMOBILE [None]
  - MENTAL DISORDER [None]
  - MUSCULOSKELETAL PAIN [None]
  - PANIC ATTACK [None]
  - PARANOIA [None]
  - PYREXIA [None]
  - SLEEP DISORDER [None]
  - SOMNOLENCE [None]
  - SUICIDAL IDEATION [None]
  - SYNCOPE [None]
  - TEARFULNESS [None]
  - THINKING ABNORMAL [None]
  - TREMOR [None]
  - VIOLENCE-RELATED SYMPTOM [None]
  - VISION BLURRED [None]
